FAERS Safety Report 5767382-X (Version None)
Quarter: 2008Q2

REPORT INFORMATION
  Report Type: 
  Country: None (occurrence: None)
  Receive Date: 20080612
  Receipt Date: 20080609
  Transmission Date: 20081010
  Serious: Yes (Disabling)
  Sender: FDA-Public Use
  Company Number: B0523073A

PATIENT
  Age: 63 Year
  Sex: Female

DRUGS (8)
  1. SERETIDE [Suspect]
     Indication: ASTHMA
     Dosage: 100MCG TWICE PER DAY
     Route: 055
     Dates: start: 20080409
  2. ERYTHROMYCIN [Concomitant]
     Indication: ASTHMA
     Dosage: 200MG TWICE PER DAY
     Route: 048
  3. AMARYL [Concomitant]
     Indication: DIABETES MELLITUS
     Dosage: 3MG TWICE PER DAY
     Route: 048
  4. UNKNOWN MEDICATION [Concomitant]
     Indication: DIABETES MELLITUS
     Dosage: 150MG PER DAY
     Route: 048
  5. SINGULAIR [Concomitant]
     Indication: ASTHMA
     Dosage: 10MG PER DAY
     Route: 048
  6. ADALAT [Concomitant]
     Indication: HYPERTENSION
     Dosage: 20MG PER DAY
     Route: 048
  7. ACTOS [Concomitant]
     Indication: INSULIN RESISTANCE
     Dosage: 15MG PER DAY
     Route: 048
  8. UNKNOWN MEDICATION [Concomitant]
     Indication: ASTHMA
     Dosage: 400MG PER DAY
     Route: 048

REACTIONS (1)
  - DYSGEUSIA [None]
